FAERS Safety Report 12631016 (Version 2)
Quarter: 2016Q3

REPORT INFORMATION
  Report Type: Spontaneous
  Country: US (occurrence: US)
  Receive Date: 20160808
  Receipt Date: 20160808
  Transmission Date: 20161109
  Serious: No
  Sender: FDA-Public Use
  Company Number: US-BEH-2015051861

PATIENT
  Sex: Female
  Weight: 96 kg

DRUGS (15)
  1. CYMBALTA [Concomitant]
     Active Substance: DULOXETINE HYDROCHLORIDE
     Dosage: 1 CAP 2 TIMES A DAY
     Route: 048
  2. PANTOPRAZOLE [Concomitant]
     Active Substance: PANTOPRAZOLE SODIUM
     Dosage: 40 MG DR, 1 TAB DAILY
     Route: 048
  3. NADOLOL. [Concomitant]
     Active Substance: NADOLOL
     Dosage: 1 TAB DAILY
     Route: 048
  4. L-GLUTATHIONE [Concomitant]
     Active Substance: GLUTATHIONE
     Route: 048
  5. LIDOCAINE/ PRILOCAINE [Concomitant]
     Route: 061
  6. IBUPROFEN. [Concomitant]
     Active Substance: IBUPROFEN
     Route: 048
  7. HIZENTRA [Suspect]
     Active Substance: HUMAN IMMUNOGLOBULIN G
     Indication: IMMUNODEFICIENCY
     Route: 058
  8. MILK THISTLE [Concomitant]
     Active Substance: MILK THISTLE
     Dosage: 1 CAPSULE DAILY
     Route: 048
  9. ACETAMINOPHEN. [Concomitant]
     Active Substance: ACETAMINOPHEN
     Dosage: 1 DOSE AS DIRECTED
     Route: 048
  10. MULTIVITAMINS TABLET [Concomitant]
     Dosage: 1 TAB DAILY
     Route: 048
  11. VALTREX [Concomitant]
     Active Substance: VALACYCLOVIR HYDROCHLORIDE
     Dosage: 1 TABLET DAILY
     Route: 048
  12. DIPHENHYDRAMINE. [Concomitant]
     Active Substance: DIPHENHYDRAMINE
     Dosage: 1 DOSE AS DIRECTED
     Route: 048
  13. LIDOCAINE 4% [Concomitant]
     Active Substance: LIDOCAINE
     Dosage: 1 DOSE AS DIRECTED
     Route: 061
  14. EPIPEN AUTOINJECTOR [Concomitant]
     Indication: ANAPHYLACTIC REACTION
     Dosage: 1 DOSE AS DIRECTED
     Route: 030
  15. TRAMADOL. [Concomitant]
     Active Substance: TRAMADOL
     Dosage: TRAMADOL HCL 50 MG TABLET, 1 TABLET DAILY

REACTIONS (3)
  - Feeling cold [Unknown]
  - Dizziness [Unknown]
  - Headache [Unknown]
